FAERS Safety Report 7607564-5 (Version None)
Quarter: 2011Q3

REPORT INFORMATION
  Report Type: 
  Country: None (occurrence: None)
  Receive Date: 20110713
  Receipt Date: 20110705
  Transmission Date: 20111222
  Serious: Yes (Other)
  Sender: FDA-Public Use
  Company Number: PHHY2011US03088

PATIENT
  Sex: Male
  Weight: 77 kg

DRUGS (13)
  1. IBUPROFEN (ADVIL) [Concomitant]
  2. ASPIRIN [Concomitant]
  3. SUPER B [Concomitant]
  4. FOLIC ACID [Concomitant]
  5. PRAVACHOL [Concomitant]
  6. EXJADE [Suspect]
     Indication: MYELODYSPLASTIC SYNDROME
     Dosage: 500 MG, DAILY
     Route: 048
     Dates: start: 20080612
  7. TYLENOL-500 [Concomitant]
  8. PRILOSEC [Concomitant]
  9. TAMSULOSIN HCL [Concomitant]
  10. PROCRIT                            /00909301/ [Concomitant]
  11. DETROL [Concomitant]
  12. PRAVASTATIN SODIUM [Concomitant]
  13. FISH OIL [Concomitant]

REACTIONS (4)
  - LEUKAEMIA [None]
  - CHILLS [None]
  - INFECTION [None]
  - PYREXIA [None]
